FAERS Safety Report 13669737 (Version 1)
Quarter: 2017Q2

REPORT INFORMATION
  Report Type: Report from Study
  Country: US (occurrence: US)
  Receive Date: 20170620
  Receipt Date: 20170620
  Transmission Date: 20170830
  Serious: Yes (Other)
  Sender: FDA-Public Use
  Company Number: US-AMGEN-USASL2017092290

PATIENT
  Age: 61 Year
  Sex: Female

DRUGS (1)
  1. ENBREL [Suspect]
     Active Substance: ETANERCEPT
     Indication: PSORIATIC ARTHROPATHY
     Dosage: UNK
     Route: 065
     Dates: start: 2017

REACTIONS (5)
  - Visual impairment [Unknown]
  - General physical health deterioration [Unknown]
  - Gout [Unknown]
  - Diabetes mellitus [Unknown]
  - Infection [Unknown]

NARRATIVE: CASE EVENT DATE: 2017
